FAERS Safety Report 9234741 (Version 1)
Quarter: 2013Q2

REPORT INFORMATION
  Report Type: Spontaneous
  Country: ES (occurrence: ES)
  Receive Date: 20130416
  Receipt Date: 20130416
  Transmission Date: 20140414
  Serious: Yes (Hospitalization)
  Sender: FDA-Public Use
  Company Number: ES-BRISTOL-MYERS SQUIBB COMPANY-18760058

PATIENT
  Age: 85 Year
  Sex: Female

DRUGS (6)
  1. KARVEZIDE [Suspect]
     Indication: HYPERTENSION
     Dosage: DF: 300/12.5 MG
     Route: 048
  2. IBUPROFEN [Suspect]
     Indication: PAIN
     Dosage: LAST DOSE: 15JUN2010
     Route: 048
     Dates: start: 20100317
  3. LORNOXICAM [Suspect]
     Indication: ARTHROPATHY
     Dosage: LAST DOSE: 26MAY2010
     Route: 048
     Dates: start: 200904
  4. ARCOXIA [Suspect]
     Indication: ARTHROPATHY
     Dosage: LAST DOSE: 26MAY2010
     Route: 048
     Dates: start: 200704
  5. ESTOMIL [Concomitant]
     Indication: PROPHYLAXIS
     Dosage: LAST DOSE: 15JUN2010
     Route: 048
  6. SERC [Concomitant]
     Dosage: LAST DOSE: 15JUN2010
     Route: 048
     Dates: start: 200609

REACTIONS (2)
  - Renal failure acute [Recovering/Resolving]
  - Haemoglobin decreased [Recovering/Resolving]
